FAERS Safety Report 7648363-8 (Version None)
Quarter: 2011Q3

REPORT INFORMATION
  Report Type: 
  Country: None (occurrence: None)
  Receive Date: 20110801
  Receipt Date: 20110728
  Transmission Date: 20111222
  Serious: Yes (Hospitalization)
  Sender: FDA-Public Use
  Company Number: IT-ROXANE LABORATORIES, INC.-2011-RO-01072RO

PATIENT
  Age: 71 Year
  Sex: Female

DRUGS (2)
  1. CYCLOPHOSPHAMIDE [Suspect]
     Indication: OVARIAN CANCER RECURRENT
  2. CISPLATIN [Suspect]
     Indication: OVARIAN CANCER RECURRENT

REACTIONS (1)
  - KOUNIS SYNDROME [None]
